FAERS Safety Report 7430150-7 (Version None)
Quarter: 2011Q2

REPORT INFORMATION
  Report Type: 
  Country: None (occurrence: None)
  Receive Date: 20110421
  Receipt Date: 20101213
  Transmission Date: 20111010
  Serious: No
  Sender: FDA-Public Use
  Company Number: US-ASTRAZENECA-2010SE58881

PATIENT
  Age: 77 Year
  Sex: Female
  Weight: 65.8 kg

DRUGS (3)
  1. METOPROLOL SUCCINATE [Suspect]
     Indication: HYPERTENSION
     Route: 048
     Dates: start: 20090101, end: 20101201
  2. METOPROLOL SUCCINATE [Suspect]
     Route: 048
     Dates: start: 20101201
  3. SUPPLEMENTS [Concomitant]

REACTIONS (2)
  - BLOOD POTASSIUM INCREASED [None]
  - THYROID DISORDER [None]
